FAERS Safety Report 8603955-4 (Version None)
Quarter: 2012Q3

REPORT INFORMATION
  Report Type: 
  Country: None (occurrence: None)
  Receive Date: 20120820
  Receipt Date: 20120808
  Transmission Date: 20120928
  Serious: Yes (Other)
  Sender: FDA-Public Use
  Company Number: US-BIOGENIDEC-2009BI022037

PATIENT
  Sex: Female

DRUGS (3)
  1. AVONEX [Suspect]
     Route: 030
     Dates: start: 20070516
  2. AVONEX [Suspect]
     Indication: MULTIPLE SCLEROSIS
     Route: 030
     Dates: start: 20000520
  3. TYSABRI [Concomitant]
     Indication: MULTIPLE SCLEROSIS
     Route: 042
     Dates: start: 20110307

REACTIONS (6)
  - MALIGNANT MELANOMA [None]
  - HIP ARTHROPLASTY [None]
  - OSTEONECROSIS [None]
  - URINARY TRACT INFECTION [None]
  - SUPERFICIAL SPREADING MELANOMA STAGE I [None]
  - MULTIPLE SCLEROSIS RELAPSE [None]
